FAERS Safety Report 8305039-1 (Version None)
Quarter: 2012Q2

REPORT INFORMATION
  Report Type: 
  Country: None (occurrence: None)
  Receive Date: 20120412
  Receipt Date: 20120329
  Transmission Date: 20120825
  Serious: Yes (Other)
  Sender: FDA-Public Use
  Company Number: 2011027859

PATIENT
  Age: 61 Year
  Sex: Female
  Weight: 88.4514 kg

DRUGS (29)
  1. HIZENTRA [Suspect]
  2. ONGLYZA (DRUG USED IN DIABETES) [Concomitant]
  3. LIPITOR [Concomitant]
  4. PERFOROMIST (FOROMOTEROL) [Concomitant]
  5. HIZENTRA [Suspect]
  6. ATENOLOL [Concomitant]
  7. BUPROPION HCL [Concomitant]
  8. HIZENTRA [Suspect]
  9. HIZENTRA [Suspect]
  10. ISOSORBIDE (ISOSORBIDE) [Concomitant]
  11. SYMBICORT (BUDESONIDE W/FORMOTEROL FUMARATE0 [Concomitant]
  12. CYMBALTA [Concomitant]
  13. NEXIUM [Concomitant]
  14. ASPIRIN [Concomitant]
  15. FLUTICASONE PROPIONATE [Concomitant]
  16. KLOR-CON [Concomitant]
  17. LASIX [Concomitant]
  18. HIZENTRA [Suspect]
     Indication: IMMUNODEFICIENCY COMMON VARIABLE
     Dosage: SEE IMAGE
     Route: 058
     Dates: start: 20110630
  19. HIZENTRA [Suspect]
     Indication: IMMUNODEFICIENCY COMMON VARIABLE
     Dosage: SEE IMAGE
     Route: 058
     Dates: start: 20110411
  20. HIZENTRA [Suspect]
     Indication: IMMUNODEFICIENCY COMMON VARIABLE
     Dosage: SEE IMAGE
     Route: 058
     Dates: start: 20110630
  21. HIZENTRA [Suspect]
     Indication: IMMUNODEFICIENCY COMMON VARIABLE
     Dosage: SEE IMAGE
     Route: 058
     Dates: start: 20110304
  22. HIZENTRA [Suspect]
     Indication: IMMUNODEFICIENCY COMMON VARIABLE
     Dosage: SEE IMAGE
     Route: 058
     Dates: start: 20120315
  23. HIZENTRA [Suspect]
     Indication: IMMUNODEFICIENCY COMMON VARIABLE
     Dosage: SEE IMAGE
     Route: 058
     Dates: start: 20110411
  24. HIZENTRA [Suspect]
     Indication: IMMUNODEFICIENCY COMMON VARIABLE
     Dosage: SEE IMAGE
     Route: 058
     Dates: start: 20120315
  25. HIZENTRA [Suspect]
  26. HIZENTRA [Suspect]
  27. TRAMADOL HC1 (TRAMADOL) [Concomitant]
  28. SPIRIVA [Concomitant]
  29. DUONEB [Concomitant]

REACTIONS (7)
  - FUNGAL INFECTION [None]
  - INFUSION SITE EXTRAVASATION [None]
  - SINUSITIS [None]
  - URINARY TRACT INFECTION [None]
  - PAIN [None]
  - APPLICATION SITE IRRITATION [None]
  - FATIGUE [None]
